FAERS Safety Report 5337190-2 (Version None)
Quarter: 2007Q2

REPORT INFORMATION
  Report Type: 
  Country: None (occurrence: None)
  Receive Date: 20070315
  Receipt Date: 20060830
  Transmission Date: 20071010
  Serious: Yes (Other)
  Sender: FDA-Public Use
  Company Number: PHEH2006US11210

PATIENT
  Age: 59 Year
  Sex: Female
  Weight: 771 kg

DRUGS (4)
  1. TRILEPTAL [Suspect]
     Indication: CONVULSION
     Dosage: SEE IMAGE
     Dates: start: 20060717, end: 20060701
  2. TRILEPTAL [Suspect]
     Indication: CONVULSION
     Dosage: SEE IMAGE
     Dates: start: 20060701, end: 20060731
  3. NEXIUM [Concomitant]
  4. KEPPRA [Concomitant]

REACTIONS (6)
  - CONFUSIONAL STATE [None]
  - DIZZINESS [None]
  - FATIGUE [None]
  - MOOD ALTERED [None]
  - NAUSEA [None]
  - SINUS DISORDER [None]
